FAERS Safety Report 5786048-3 (Version None)
Quarter: 2008Q2

REPORT INFORMATION
  Report Type: 
  Country: None (occurrence: None)
  Receive Date: 20080610
  Receipt Date: 20080610
  Transmission Date: 20081010
  Serious: Yes (Death, Other)
  Sender: FDA-Public Use
  Company Number: 2007-02614

PATIENT
  Age: 68 Year
  Sex: Male
  Weight: 73 kg

DRUGS (7)
  1. VELCADE [Suspect]
     Indication: MULTIPLE MYELOMA
     Dosage: 2.40 MG, INTRAVENOUS
     Route: 042
     Dates: start: 20070219, end: 20070322
  2. DEXAMETHASONE (DEMATHASONE) TABLET [Concomitant]
  3. VANCOMYCIN [Concomitant]
  4. KALLIKREIN (KALLIDINOGENASE) [Concomitant]
  5. ADENOSINE TRIPHOSPHATE, DISODIUM SALT (ADENOSINE TRIPHOSPHATE, DISODIU [Concomitant]
  6. SULFAMETHOXAZOLE AND TRIMETHOPRIM [Concomitant]
  7. FAMOTIDINE [Concomitant]

REACTIONS (4)
  - DISEASE PROGRESSION [None]
  - HYPERURICAEMIA [None]
  - PLATELET COUNT DECREASED [None]
  - WHITE BLOOD CELL COUNT DECREASED [None]
